FAERS Safety Report 25567522 (Version 1)
Quarter: 2025Q3

REPORT INFORMATION
  Report Type: Spontaneous
  Country: US (occurrence: US)
  Receive Date: 20250716
  Receipt Date: 20250716
  Transmission Date: 20251021
  Serious: Yes (Other)
  Sender: BRISTOL-MYERS SQUIBB COMPANY
  Company Number: US-BRISTOL-MYERS SQUIBB COMPANY-2025-097651

PATIENT
  Age: 35 Year
  Sex: Male

DRUGS (3)
  1. THALOMID [Suspect]
     Active Substance: THALIDOMIDE
     Indication: Gastrointestinal haemorrhage
     Route: 048
     Dates: start: 20250710
  2. THALOMID [Suspect]
     Active Substance: THALIDOMIDE
     Indication: Haemoperitoneum
  3. THALOMID [Suspect]
     Active Substance: THALIDOMIDE
     Indication: Gastrointestinal disorder

REACTIONS (1)
  - Off label use [Unknown]

NARRATIVE: CASE EVENT DATE: 20250710
